FAERS Safety Report 15247708 (Version 1)
Quarter: 2018Q3

REPORT INFORMATION
  Report Type: Other
  Country: DE (occurrence: DE)
  Receive Date: 20180807
  Receipt Date: 20180807
  Transmission Date: 20181010
  Serious: Yes (Congenital Anomaly)
  Sender: FDA-Public Use
  Company Number: DE-DEXPHARM-20180550

PATIENT
  Sex: Male
  Weight: 2.9 kg

DRUGS (4)
  1. SULFASALAZINE. [Suspect]
     Active Substance: SULFASALAZINE
     Dosage: GESTATIONAL WEEK OF EXPOSURE? 17
     Route: 064
  2. DICLOFENAC [Suspect]
     Active Substance: DICLOFENAC
     Dosage: GESTATIONAL WEEK OF EXPOSURE? 23 ; AS NECESSARY
     Route: 064
  3. HYDROXYCHLOROQUINE [Suspect]
     Active Substance: HYDROXYCHLOROQUINE
     Dosage: GESTATIONAL WEEK OF EXPOSURE ? 13
     Route: 064
  4. PARACETAMOL [Suspect]
     Active Substance: ACETAMINOPHEN
     Dosage: GESTATIONAL WEEK OF EXPOSURE? 17?21
     Route: 064

REACTIONS (2)
  - Microcephaly [Unknown]
  - Maternal exposure during pregnancy [Unknown]
